FAERS Safety Report 20882756 (Version 1)
Quarter: 2022Q2

REPORT INFORMATION
  Report Type: Spontaneous
  Country: CA (occurrence: CA)
  Receive Date: 20220527
  Receipt Date: 20220527
  Transmission Date: 20220721
  Serious: Yes (Congenital Anomaly, Other)
  Sender: FDA-Public Use
  Company Number: None

PATIENT
  Age: 6 Month
  Sex: Female

DRUGS (10)
  1. LEVOTHYROXINE [Suspect]
     Active Substance: LEVOTHYROXINE
     Route: 064
  2. OMEPRAZOLE [Suspect]
     Active Substance: OMEPRAZOLE
     Route: 064
  3. CYCLOBENZAPRINE [Suspect]
     Active Substance: CYCLOBENZAPRINE
     Route: 064
  4. DOCUSATE SODIUM [Suspect]
     Active Substance: DOCUSATE SODIUM
     Route: 064
  5. DOMPERIDONE [Suspect]
     Active Substance: DOMPERIDONE
     Route: 064
  6. DULOXETINE [Suspect]
     Active Substance: DULOXETINE
     Dosage: 1 EVERY 1 DAY, 1. 0 DOSAGE FORM
     Route: 064
  7. INSULIN NOS [Suspect]
     Active Substance: INSULIN NOS
     Route: 064
  8. FERROUS SULFATE ANHYDROUS [Suspect]
     Active Substance: FERROUS SULFATE ANHYDROUS
     Route: 064
  9. METHYLPHENIDATE [Suspect]
     Active Substance: METHYLPHENIDATE
     Dosage: 1 EVERY 1 DAYS
     Route: 064
  10. URSODIOL [Suspect]
     Active Substance: URSODIOL
     Route: 064

REACTIONS (7)
  - Lung cyst [Unknown]
  - Pneumonia [Unknown]
  - Pulmonary malformation [Unknown]
  - Somnolence [Unknown]
  - Foetal exposure during pregnancy [Unknown]
  - Congenital anomaly [Unknown]
  - Respiratory tract malformation [Unknown]
